FAERS Safety Report 18938806 (Version 1)
Quarter: 2021Q1

REPORT INFORMATION
  Report Type: Spontaneous
  Country: US (occurrence: US)
  Receive Date: 20210225
  Receipt Date: 20210225
  Transmission Date: 20210420
  Serious: Yes (Other)
  Sender: FDA-Public Use
  Company Number: None

PATIENT
  Age: 57 Year
  Sex: Male
  Weight: 90 kg

DRUGS (1)
  1. METFORMIN HCL TABS 500MG [Suspect]
     Active Substance: METFORMIN HYDROCHLORIDE
     Indication: DIABETES MELLITUS
     Dosage: ?          QUANTITY:1 TABLET(S);?
     Route: 048
     Dates: start: 20210224, end: 20210224

REACTIONS (5)
  - Taste disorder [None]
  - Feeling abnormal [None]
  - Nausea [None]
  - Vomiting [None]
  - Blood glucose decreased [None]

NARRATIVE: CASE EVENT DATE: 20210224
